FAERS Safety Report 12955744 (Version 1)
Quarter: 2016Q4

REPORT INFORMATION
  Report Type: Spontaneous
  Country: US (occurrence: US)
  Receive Date: 20161118
  Receipt Date: 20161118
  Transmission Date: 20170207
  Serious: Yes (Other)
  Sender: FDA-Public Use
  Company Number: US-SAOL THERAPEUTICS-2016SAO01067

PATIENT
  Sex: Male

DRUGS (1)
  1. LIORESAL [Suspect]
     Active Substance: BACLOFEN
     Dosage: 12.5 ?G, \DAY

REACTIONS (4)
  - Implant site extravasation [Unknown]
  - Complication associated with device [Unknown]
  - Muscle spasticity [Unknown]
  - Intracranial hypotension [Unknown]
